FAERS Safety Report 8575543-X (Version None)
Quarter: 2012Q3

REPORT INFORMATION
  Report Type: 
  Country: None (occurrence: None)
  Receive Date: 20120807
  Receipt Date: 20120802
  Transmission Date: 20120928
  Serious: Yes (Hospitalization)
  Sender: FDA-Public Use
  Company Number: PHHY2012CN066922

PATIENT
  Age: 75 Year
  Sex: Male

DRUGS (5)
  1. INSULIN [Concomitant]
     Route: 058
  2. IRBESARTAN AND HYDROCHLOROTHIAZIDE [Concomitant]
     Dosage: UNK UKN, UNK
  3. IMATINIB MESYLATE [Suspect]
     Dosage: 400 MG, QD
  4. IMATINIB MESYLATE [Suspect]
     Indication: GASTROINTESTINAL STROMAL TUMOUR
     Dosage: 400 MG, UNK
  5. IMATINIB MESYLATE [Suspect]
     Dosage: 400 MG  FOR 4 DAYS

REACTIONS (7)
  - SKIN EXFOLIATION [None]
  - CHEST PAIN [None]
  - HYDROTHORAX [None]
  - RASH ERYTHEMATOUS [None]
  - PLEURAL EFFUSION [None]
  - INTERSTITIAL LUNG DISEASE [None]
  - COUGH [None]
